FAERS Safety Report 9529080 (Version 2)
Quarter: 2013Q3

REPORT INFORMATION
  Report Type: Not Available
  Country: US (occurrence: US)
  Receive Date: 20130916
  Receipt Date: 20130916
  Transmission Date: 20140515
  Serious: No
  Sender: FDA-Public Use
  Company Number: US-LUNDBECK-DKLU1087155

PATIENT
  Sex: Male

DRUGS (4)
  1. ONFI [Suspect]
     Indication: EPILEPSY
     Route: 048
     Dates: start: 20121206
  2. LAMICTAL XR [Concomitant]
     Indication: PRODUCT USED FOR UNKNOWN INDICATION
  3. KEPPRA [Concomitant]
     Indication: PRODUCT USED FOR UNKNOWN INDICATION
  4. PHENOBARBITAL [Concomitant]
     Indication: PRODUCT USED FOR UNKNOWN INDICATION

REACTIONS (2)
  - Clumsiness [Not Recovered/Not Resolved]
  - Fall [Not Recovered/Not Resolved]
